FAERS Safety Report 4458443-6 (Version None)
Quarter: 2004Q3

REPORT INFORMATION
  Report Type: 
  Country: None (occurrence: None)
  Receive Date: 20040922
  Receipt Date: 20040414
  Transmission Date: 20050211
  Serious: Yes (Hospitalization)
  Sender: FDA-Public Use
  Company Number: US-SHR-03-015075

PATIENT
  Age: 31 Year
  Sex: Female
  Weight: 74.8 kg

DRUGS (9)
  1. BETASERON [Suspect]
     Indication: MULTIPLE SCLEROSIS
     Dosage: 2 MIU, EVERY 2D, SUBCUTANEOUS;6 MIU, EVERY 2D, SUBCUTANEOUS
     Route: 058
     Dates: start: 20030101, end: 20030101
  2. BETASERON [Suspect]
     Indication: MULTIPLE SCLEROSIS
     Dosage: 2 MIU, EVERY 2D, SUBCUTANEOUS;6 MIU, EVERY 2D, SUBCUTANEOUS
     Route: 058
     Dates: start: 20030101, end: 20030920
  3. RYNA (PSEUDOPHEDRINE HYDROCHLORIDE, CHLORPHENAMINE) [Concomitant]
  4. ZITHROMAX [Concomitant]
  5. IBUPROFEN [Concomitant]
  6. TYLENOL [Concomitant]
  7. PREVACID [Concomitant]
  8. HUMIBID (GUAIFENESIN) [Concomitant]
  9. ORAL CONTRACEPTIVE NOS (ORAL CONTRACEPTIVE NOS) [Concomitant]

REACTIONS (6)
  - BLOOD POTASSIUM DECREASED [None]
  - BRONCHITIS [None]
  - CHEST PAIN [None]
  - MULTIPLE SCLEROSIS [None]
  - SINUSITIS [None]
  - THORACIC OUTLET SYNDROME [None]
